FAERS Safety Report 4896164-6 (Version None)
Quarter: 2006Q1

REPORT INFORMATION
  Report Type: 
  Country: None (occurrence: None)
  Receive Date: 20060126
  Receipt Date: 20060117
  Transmission Date: 20060701
  Serious: Yes (Other)
  Sender: FDA-Public Use
  Company Number: 2006009716

PATIENT
  Sex: Female

DRUGS (7)
  1. NORVASC [Suspect]
     Indication: BLOOD PRESSURE
     Dosage: 5 MG (5 MG, 1 IN 1 D),
     Dates: start: 20030101, end: 20050101
  2. DETROL LA [Suspect]
     Indication: HYPERTONIC BLADDER
     Dates: start: 20050101
  3. LISINOPRIL [Concomitant]
  4. COZAAR [Concomitant]
  5. CATAPRES [Concomitant]
  6. HYDROCHLOROTHIAZIDE [Concomitant]
  7. FOSAMAX [Concomitant]

REACTIONS (6)
  - BODY HEIGHT DECREASED [None]
  - CARDIAC VALVE DISEASE [None]
  - GLAUCOMA [None]
  - HYPERTONIC BLADDER [None]
  - JOINT SWELLING [None]
  - MUSCLE SPASMS [None]
